FAERS Safety Report 9221133 (Version 2)
Quarter: 2013Q2

REPORT INFORMATION
  Report Type: Spontaneous
  Country: FR (occurrence: FR)
  Receive Date: 20130409
  Receipt Date: 20130409
  Transmission Date: 20140414
  Serious: Yes (Hospitalization)
  Sender: FDA-Public Use
  Company Number: FR-009507513-0808USA03489

PATIENT
  Age: 1 Year
  Sex: Female

DRUGS (2)
  1. MEASLES, MUMPS, AND RUBELLA (WISTAR RA 27-3) VIRUS VACC, LIVE [Suspect]
     Indication: IMMUNISATION
     Route: 030
     Dates: start: 19931017, end: 19931017
  2. BCG LIVE [Suspect]
     Indication: TUBERCULOSIS BLADDER
     Route: 023
     Dates: start: 199307, end: 199307

REACTIONS (17)
  - Kawasaki^s disease [Recovered/Resolved]
  - Hyperthermia [Recovered/Resolved]
  - Rash morbilliform [Recovered/Resolved]
  - Conjunctival hyperaemia [Unknown]
  - Enanthema [Unknown]
  - Cough [Unknown]
  - Vomiting [Unknown]
  - Anal inflammation [Unknown]
  - Asthenia [Unknown]
  - Lymphadenopathy [Unknown]
  - Urticaria [Unknown]
  - Local swelling [Unknown]
  - Erythema [Unknown]
  - Skin exfoliation [Unknown]
  - Thrombocytosis [Recovered/Resolved]
  - Neutrophil count increased [Recovered/Resolved]
  - Alanine aminotransferase increased [Recovered/Resolved]
